FAERS Safety Report 9940712 (Version 3)
Quarter: 2014Q1

REPORT INFORMATION
  Report Type: Report from Study
  Country: US (occurrence: US)
  Receive Date: 20140303
  Receipt Date: 20140320
  Transmission Date: 20141002
  Serious: Yes (Death, Hospitalization)
  Sender: FDA-Public Use
  Company Number: US-CELGENEUS-163-21880-14022755

PATIENT
  Age: 63 Year
  Sex: Male
  Weight: 103.4 kg

DRUGS (54)
  1. REVLIMID [Suspect]
     Indication: DIFFUSE LARGE B-CELL LYMPHOMA
     Dosage: 20 MILLIGRAM
     Route: 048
     Dates: start: 20131219, end: 20140108
  2. REVLIMID [Suspect]
     Dosage: 20 MILLIGRAM
     Route: 048
     Dates: start: 20140116, end: 20140205
  3. TEMSIROLIMUS [Suspect]
     Indication: DIFFUSE LARGE B-CELL LYMPHOMA
     Route: 041
     Dates: start: 20131219
  4. TEMSIROLIMUS [Suspect]
     Route: 041
     Dates: start: 20140116, end: 20140206
  5. ASPIRIN [Concomitant]
     Indication: THROMBOSIS PROPHYLAXIS
     Dosage: 324 MILLIGRAM
     Route: 048
     Dates: start: 20140221, end: 20140221
  6. ASPIRIN [Concomitant]
     Dosage: 81 MILLIGRAM
     Route: 048
     Dates: start: 20140222, end: 20140223
  7. METFORMIN [Concomitant]
     Indication: PRODUCT USED FOR UNKNOWN INDICATION
     Dosage: 500 MILLIGRAM
     Route: 065
  8. METFORMIN [Concomitant]
     Dosage: 1000 MILLIGRAM
     Route: 065
  9. GLIPIZIDE [Concomitant]
     Indication: HYPERGLYCAEMIA
     Dosage: 10 MILLIGRAM
     Route: 065
     Dates: start: 20140207
  10. GLIPIZIDE [Concomitant]
     Dosage: 5 MILLIGRAM
     Route: 048
  11. LIPITOR [Concomitant]
     Indication: PRODUCT USED FOR UNKNOWN INDICATION
     Dosage: 20 MILLIGRAM
     Route: 048
  12. LIPITOR [Concomitant]
     Dosage: 80 MILLIGRAM
     Route: 048
     Dates: start: 20140222, end: 20140223
  13. VITAMIN D2 [Concomitant]
     Indication: PRODUCT USED FOR UNKNOWN INDICATION
     Dosage: 2000 UNITS
     Route: 048
     Dates: start: 20140222, end: 20140223
  14. NEURONTIN [Concomitant]
     Indication: PRODUCT USED FOR UNKNOWN INDICATION
     Dosage: 200 MILLIGRAM
     Route: 048
  15. NEURONTIN [Concomitant]
     Dosage: 100 MILLIGRAM
     Route: 048
  16. NEURONTIN [Concomitant]
     Dosage: 300 MILLIGRAM
     Route: 048
     Dates: start: 20140221, end: 20140223
  17. VALTREX [Concomitant]
     Indication: PRODUCT USED FOR UNKNOWN INDICATION
     Dosage: 1000 MILLIGRAM
     Route: 048
     Dates: end: 20140223
  18. SENNA LAXATIVE [Concomitant]
     Indication: CONSTIPATION
     Dosage: 50 MILLIGRAM
     Route: 048
  19. SENNA LAXATIVE [Concomitant]
     Dosage: 17.2 MILLIGRAM
     Route: 048
     Dates: start: 20140221, end: 20140223
  20. LASIX [Concomitant]
     Indication: OEDEMA PERIPHERAL
     Route: 065
     Dates: start: 20140217
  21. LASIX [Concomitant]
     Dosage: 40 MILLIGRAM
     Route: 041
     Dates: start: 20140221, end: 20140222
  22. PROSCAR [Concomitant]
     Indication: PRODUCT USED FOR UNKNOWN INDICATION
     Dosage: 5 MILLIGRAM
     Route: 048
     Dates: start: 20140222, end: 20140223
  23. THERALITH [Concomitant]
     Indication: PRODUCT USED FOR UNKNOWN INDICATION
     Dosage: 1000 MILLIGRAM
     Route: 048
  24. ZANTAC [Concomitant]
     Indication: PRODUCT USED FOR UNKNOWN INDICATION
     Dosage: 300 MILLIGRAM
     Route: 048
  25. BACTRIM [Concomitant]
     Indication: PRODUCT USED FOR UNKNOWN INDICATION
     Dosage: 400 - 80 MG
     Route: 048
  26. NORMAL SALINE [Concomitant]
     Indication: PRODUCT USED FOR UNKNOWN INDICATION
     Dosage: 250 MILLILITER
     Route: 041
     Dates: start: 20131219
  27. NORMAL SALINE [Concomitant]
     Dosage: 250 MILLILITER
     Route: 041
     Dates: start: 20131227
  28. NORMAL SALINE [Concomitant]
     Dosage: 250 MILLILITER
     Route: 041
     Dates: start: 20140102
  29. NORMAL SALINE [Concomitant]
     Dosage: 250 MILLILITER
     Route: 041
     Dates: start: 20140109
  30. NORMAL SALINE [Concomitant]
     Route: 041
     Dates: start: 20140223, end: 20140223
  31. NORMAL SALINE [Concomitant]
     Route: 041
     Dates: start: 20140223, end: 20140223
  32. DIPHENHYDRAMINE [Concomitant]
     Indication: PRODUCT USED FOR UNKNOWN INDICATION
     Route: 041
     Dates: start: 20131219
  33. DIPHENHYDRAMINE [Concomitant]
     Route: 041
     Dates: start: 20140116, end: 20140206
  34. MUCONIX [Concomitant]
     Indication: PRODUCT USED FOR UNKNOWN INDICATION
     Route: 065
  35. MIRALAX [Concomitant]
     Indication: CONSTIPATION
     Route: 065
  36. MULTIVITAMINS [Concomitant]
     Indication: PRODUCT USED FOR UNKNOWN INDICATION
     Route: 065
  37. POTASSIUM CHLORIDE [Concomitant]
     Indication: PRODUCT USED FOR UNKNOWN INDICATION
     Dosage: 20 MILLIEQUIVALENTS
     Route: 048
     Dates: start: 20140221, end: 20140223
  38. FENTANYL [Concomitant]
     Indication: PRODUCT USED FOR UNKNOWN INDICATION
     Route: 041
  39. FENTANYL [Concomitant]
     Dosage: 1200 MICROGRAM
     Route: 041
     Dates: start: 20140223, end: 20140223
  40. CHLORHEXIDINE GLUCONATE [Concomitant]
     Indication: PRODUCT USED FOR UNKNOWN INDICATION
     Dosage: 30 MILLILITER
     Route: 048
     Dates: start: 20140223, end: 20140223
  41. DOCUSATE [Concomitant]
     Indication: PRODUCT USED FOR UNKNOWN INDICATION
     Dosage: 200 MILLIGRAM
     Route: 048
     Dates: start: 20140222, end: 20140222
  42. HEPARIN [Concomitant]
     Indication: PRODUCT USED FOR UNKNOWN INDICATION
     Dosage: 5000 UNITS
     Route: 058
     Dates: start: 20140222, end: 20140223
  43. HEPARIN [Concomitant]
     Dosage: 25000 UNITS/2.5ML
     Route: 041
     Dates: start: 20140223, end: 20140223
  44. HEPARIN [Concomitant]
     Dosage: 5000 UNITS
     Route: 058
  45. INSULIN ASPART [Concomitant]
     Indication: HYPERGLYCAEMIA
     Dosage: SLIDING SCALE
     Route: 058
     Dates: start: 20140212, end: 20140223
  46. INSULIN ASPART [Concomitant]
     Dosage: 1-3 UNITS
     Route: 058
  47. METOPROLOL [Concomitant]
     Indication: HYPERTENSION
     Dosage: 25 MILLIGRAM
     Route: 048
     Dates: start: 20140221, end: 20140222
  48. MORPHINE SULFATE [Concomitant]
     Indication: PAIN
     Dosage: 2 MILLIGRAM
     Route: 041
     Dates: start: 20140223, end: 20140223
  49. ZOSYN [Concomitant]
     Indication: PNEUMONIA
     Dosage: 13.5 GRAM
     Route: 041
     Dates: start: 20140223, end: 20140223
  50. VANCOMYCIN [Concomitant]
     Indication: HYPERTENSION
     Route: 041
     Dates: start: 20140223, end: 20140223
  51. VANCOMYCIN [Concomitant]
     Route: 041
     Dates: start: 20140223, end: 20140223
  52. VASOPRESSIN [Concomitant]
     Indication: PRODUCT USED FOR UNKNOWN INDICATION
     Dosage: 50 UNITS/250ML
     Route: 041
     Dates: start: 20140223, end: 20140223
  53. FAMOTIDINE [Concomitant]
     Indication: PRODUCT USED FOR UNKNOWN INDICATION
     Dosage: 40 MILLIGRAM
     Route: 048
  54. FAMOTIDINE [Concomitant]
     Dosage: 40 MILLIGRAM
     Route: 041

REACTIONS (2)
  - Myocardial infarction [Fatal]
  - Influenza [Unknown]
